FAERS Safety Report 6775242-0 (Version None)
Quarter: 2010Q2

REPORT INFORMATION
  Report Type: 
  Country: None (occurrence: None)
  Receive Date: 20100617
  Receipt Date: 20100611
  Transmission Date: 20101027
  Serious: Yes (Other)
  Sender: FDA-Public Use
  Company Number: US-JNJFOC-20100504282

PATIENT
  Age: 2 Month
  Sex: Female
  Weight: 5.44 kg

DRUGS (6)
  1. CONCENTRATED TYLENOL INFANT DROPS [Suspect]
     Route: 048
  2. CONCENTRATED TYLENOL INFANT DROPS [Suspect]
     Indication: IMMUNISATION
     Dosage: 80MG A FEW TIMES
     Route: 048
  3. VACCINES [Suspect]
     Indication: IMMUNISATION
  4. CONCENTRATED TYLENOL INFANT DROPS [Suspect]
     Route: 048
  5. CONCENTRATED TYLENOL INFANT DROPS [Suspect]
     Indication: IMMUNISATION
     Dosage: 80MG, EVERY FOUR HOURS FOR TWO DAYS
     Route: 048
  6. AMOXICILLIN [Concomitant]
     Indication: BACTERIAL INFECTION

REACTIONS (8)
  - DIARRHOEA [None]
  - DRUG INEFFECTIVE [None]
  - INADEQUATE DIET [None]
  - INFECTION [None]
  - MALAISE [None]
  - PRODUCT QUALITY ISSUE [None]
  - PYREXIA [None]
  - VOMITING [None]
